FAERS Safety Report 14772932 (Version 1)
Quarter: 2018Q2

REPORT INFORMATION
  Report Type: Spontaneous
  Country: US (occurrence: US)
  Receive Date: 20180418
  Receipt Date: 20180418
  Transmission Date: 20180711
  Serious: No
  Sender: FDA-Public Use
  Company Number: US-PFIZER INC-2018158826

PATIENT
  Age: 59 Year
  Sex: Male
  Weight: 75 kg

DRUGS (1)
  1. CHANTIX [Suspect]
     Active Substance: VARENICLINE TARTRATE
     Indication: SMOKING CESSATION THERAPY
     Dosage: 1 MG, UNK

REACTIONS (3)
  - Hyperhidrosis [Unknown]
  - Vertigo [Recovering/Resolving]
  - Dizziness [Recovering/Resolving]
